FAERS Safety Report 13931106 (Version 1)
Quarter: 2017Q3

REPORT INFORMATION
  Report Type: Report from Study
  Country: GB (occurrence: GB)
  Receive Date: 20170902
  Receipt Date: 20170902
  Transmission Date: 20171127
  Serious: Yes (Other)
  Sender: FDA-Public Use
  Company Number: GB-AMGEN-GBRSL2017131879

PATIENT
  Age: 81 Year
  Sex: Female

DRUGS (2)
  1. ARANESP [Suspect]
     Active Substance: DARBEPOETIN ALFA
     Indication: PRODUCT USED FOR UNKNOWN INDICATION
     Dosage: 30 MUG, FORTNIGHTLY
     Route: 065
  2. ARANESP [Suspect]
     Active Substance: DARBEPOETIN ALFA
     Dosage: 30 MUG, Q3WK
     Route: 065

REACTIONS (4)
  - Off label use [Unknown]
  - Bipolar I disorder [Unknown]
  - Haemoglobin increased [Unknown]
  - Hypertension [Unknown]

NARRATIVE: CASE EVENT DATE: 2017
